FAERS Safety Report 10619167 (Version 1)
Quarter: 2014Q4

REPORT INFORMATION
  Report Type: Spontaneous
  Country: FR (occurrence: FR)
  Receive Date: 20141202
  Receipt Date: 20141202
  Transmission Date: 20150529
  Serious: Yes (Hospitalization)
  Sender: FDA-Public Use
  Company Number: FR-SA-2014SA162171

PATIENT
  Age: 68 Year
  Sex: Male
  Weight: 103 kg

DRUGS (10)
  1. VIT K ANTAGONISTS [Concomitant]
     Active Substance: UNSPECIFIED INGREDIENT
  2. BACLOFEN. [Concomitant]
     Active Substance: BACLOFEN
     Dosage: 2-2-2
  3. CHIBRO-PROSCAR [Concomitant]
     Active Substance: FINASTERIDE
  4. ECONAZOLE [Concomitant]
     Active Substance: ECONAZOLE
  5. IMOVANE [Concomitant]
     Active Substance: ZOPICLONE
  6. MECIR [Concomitant]
     Active Substance: TAMSULOSIN HYDROCHLORIDE
     Dosage: 0.4 MG/DAY
  7. PREVISCAN [Concomitant]
     Active Substance: FLUINDIONE
  8. TAHOR [Concomitant]
     Active Substance: ATORVASTATIN CALCIUM
     Dosage: 40MG/DAY
  9. LOVENOX [Suspect]
     Active Substance: ENOXAPARIN SODIUM
     Indication: ATRIAL FIBRILLATION
     Route: 058
     Dates: start: 20141022, end: 20141105
  10. LYRICA [Concomitant]
     Active Substance: PREGABALIN
     Dosage: 1-0-1

REACTIONS (3)
  - Retroperitoneal haematoma [Recovering/Resolving]
  - Shock haemorrhagic [Recovering/Resolving]
  - Anticoagulation drug level increased [Recovered/Resolved]

NARRATIVE: CASE EVENT DATE: 20141105
